FAERS Safety Report 13738890 (Version 2)
Quarter: 2018Q2

REPORT INFORMATION
  Report Type: Spontaneous
  Country: US (occurrence: US)
  Receive Date: 20170710
  Receipt Date: 20180627
  Transmission Date: 20180711
  Serious: No
  Sender: FDA-Public Use
  Company Number: US-SAOL THERAPEUTICS-2017SAO01024

PATIENT
  Age: 35 Year
  Sex: Male
  Weight: 58.96 kg

DRUGS (8)
  1. MARIJUANA [Concomitant]
     Active Substance: CANNABIS SATIVA SUBSP. INDICA TOP
  2. BACLOFEN. [Concomitant]
     Active Substance: BACLOFEN
     Dosage: 20 MG, UNK
  3. NORCO [Concomitant]
     Active Substance: ACETAMINOPHEN\HYDROCODONE BITARTRATE
  4. GABLOFEN [Suspect]
     Active Substance: BACLOFEN
     Dosage: 183 ?G, \DAY
     Route: 037
  5. FENTANYL. [Concomitant]
     Active Substance: FENTANYL
     Dosage: 12 UNK, UNK
     Route: 062
  6. GABLOFEN [Suspect]
     Active Substance: BACLOFEN
     Dosage: 240 ?G, \DAY
     Route: 037
  7. GABLOFEN [Suspect]
     Active Substance: BACLOFEN
     Dosage: 165.2 ?G, \DAY
     Route: 037
  8. VALIUM [Concomitant]
     Active Substance: DIAZEPAM
     Dosage: 10 MG, UNK

REACTIONS (4)
  - Muscle spasticity [Unknown]
  - Device failure [Recovered/Resolved]
  - Urinary tract infection [Unknown]
  - Diarrhoea [Unknown]

NARRATIVE: CASE EVENT DATE: 20170506
